FAERS Safety Report 11241613 (Version 2)
Quarter: 2015Q3

REPORT INFORMATION
  Report Type: Spontaneous
  Country: CN (occurrence: CN)
  Receive Date: 20150706
  Receipt Date: 20150723
  Transmission Date: 20151125
  Serious: Yes (Other)
  Sender: FDA-Public Use
  Company Number: CN-FRESENIUS KABI-FK201503177

PATIENT
  Age: 61 Year
  Sex: Male

DRUGS (13)
  1. OXALIPLATIN (MANUFACTURER UNKNOWN) [Suspect]
     Active Substance: OXALIPLATIN
     Indication: METASTASES TO CENTRAL NERVOUS SYSTEM
  2. FLUOROURACIL (MANUFACTURER UNKNOWN) [Suspect]
     Active Substance: FLUOROURACIL
     Indication: METASTASES TO CENTRAL NERVOUS SYSTEM
  3. MITOMYCIN. [Concomitant]
     Active Substance: MITOMYCIN
  4. OXALIPLATIN (MANUFACTURER UNKNOWN) [Suspect]
     Active Substance: OXALIPLATIN
     Indication: HEPATIC CANCER METASTATIC
     Route: 041
     Dates: start: 20121205
  5. LEUCOVORIN CALCIUM (MANUFACTURER UNKNOWN) [Suspect]
     Active Substance: LEUCOVORIN CALCIUM
     Indication: METASTASES TO LUNG
  6. FLUOROURACIL (MANUFACTURER UNKNOWN) [Suspect]
     Active Substance: FLUOROURACIL
     Indication: HEPATIC CANCER METASTATIC
     Route: 042
     Dates: start: 20121205
  7. LEUCOVORIN CALCIUM (MANUFACTURER UNKNOWN) [Suspect]
     Active Substance: LEUCOVORIN CALCIUM
     Indication: HEPATIC CANCER METASTATIC
     Route: 041
     Dates: start: 20121205
  8. LEUCOVORIN CALCIUM (MANUFACTURER UNKNOWN) [Suspect]
     Active Substance: LEUCOVORIN CALCIUM
     Indication: METASTASES TO CENTRAL NERVOUS SYSTEM
  9. SORAFENIB [Concomitant]
     Active Substance: SORAFENIB
     Dates: start: 20111113, end: 20120514
  10. OXALIPLATIN (MANUFACTURER UNKNOWN) [Suspect]
     Active Substance: OXALIPLATIN
     Indication: METASTASES TO LUNG
  11. FLUOROURACIL (MANUFACTURER UNKNOWN) [Suspect]
     Active Substance: FLUOROURACIL
     Indication: METASTASES TO LUNG
     Route: 042
     Dates: start: 20120917
  12. LAMIVUDINE. [Concomitant]
     Active Substance: LAMIVUDINE
     Route: 048
  13. IODINE [Concomitant]
     Active Substance: IODINE

REACTIONS (1)
  - Hepatitis B [Unknown]
